FAERS Safety Report 7350427-3 (Version None)
Quarter: 2011Q1

REPORT INFORMATION
  Report Type: 
  Country: None (occurrence: None)
  Receive Date: 20110314
  Receipt Date: 20110304
  Transmission Date: 20110831
  Serious: Yes (Life-Threatening, Hospitalization)
  Sender: FDA-Public Use
  Company Number: IT-CELGENEUS-083-C5013-11022014

PATIENT
  Sex: Male
  Weight: 84 kg

DRUGS (13)
  1. DEXAMETHASONE [Suspect]
     Dosage: 20 MILLIGRAM
     Route: 065
     Dates: start: 20110202, end: 20110210
  2. ZYLORIC [Concomitant]
     Dosage: 300 MILLIGRAM
     Route: 048
     Dates: start: 19900101
  3. CARDIOASPIRINE [Concomitant]
     Indication: THROMBOSIS PROPHYLAXIS
     Dosage: 100 MILLIGRAM
     Route: 048
     Dates: start: 20101020
  4. TRIATEC [Concomitant]
     Dosage: 2.5 MILLIGRAM
     Route: 048
     Dates: start: 20110105
  5. DEXAMETHASONE [Suspect]
     Indication: MULTIPLE MYELOMA
     Dosage: 20 MILLIGRAM
     Route: 065
     Dates: start: 20101020
  6. BIFRIL [Concomitant]
     Indication: HYPERTENSION
     Dosage: 7.5 MILLIGRAM
     Route: 048
     Dates: start: 20100201
  7. BACTRIM [Concomitant]
     Dosage: 2 TABLET
     Route: 048
     Dates: start: 20101020
  8. CC-5013 [Suspect]
     Dosage: 15 MILLIGRAM
     Route: 048
     Dates: start: 20110202, end: 20110210
  9. LANSOPRAZOLE [Concomitant]
     Indication: PROPHYLAXIS
     Dosage: 30 MILLIGRAM
     Route: 048
     Dates: start: 20101020
  10. CC-5013 [Suspect]
     Indication: MULTIPLE MYELOMA
     Dosage: 25 MILLIGRAM
     Route: 048
     Dates: start: 20101020
  11. DIURESIX [Concomitant]
     Dosage: 10 MILLIGRAM
     Route: 048
     Dates: start: 20110105, end: 20110216
  12. DEPONIT [Concomitant]
     Dosage: 5 MILLIGRAM
     Route: 062
     Dates: start: 20110119, end: 20110215
  13. CONGESCOR [Concomitant]
     Dosage: 1.25 MILLIGRAM
     Route: 048
     Dates: start: 20110119

REACTIONS (9)
  - WHITE BLOOD CELL COUNT DECREASED [None]
  - GENERAL PHYSICAL HEALTH DETERIORATION [None]
  - BLOOD ALBUMIN DECREASED [None]
  - ATRIAL FIBRILLATION [None]
  - RENAL FAILURE ACUTE [None]
  - LEFT VENTRICULAR DYSFUNCTION [None]
  - NEUTROPHIL COUNT DECREASED [None]
  - BLOOD CALCIUM DECREASED [None]
  - BLOOD POTASSIUM DECREASED [None]
